FAERS Safety Report 5774421-9 (Version None)
Quarter: 2008Q2

REPORT INFORMATION
  Report Type: 
  Country: None (occurrence: None)
  Receive Date: 20080616
  Receipt Date: 20080606
  Transmission Date: 20081010
  Serious: Yes (Other)
  Sender: FDA-Public Use
  Company Number: AU-WYE-H04438108

PATIENT
  Sex: Male

DRUGS (5)
  1. AMIODARONE HCL [Suspect]
     Indication: VENTRICULAR TACHYCARDIA
     Route: 042
     Dates: start: 20080509, end: 20080510
  2. MAGNESIUM [Concomitant]
     Dosage: 500 MG, FREQUENCY UNKNOWN
     Route: 048
     Dates: start: 20080509, end: 20080517
  3. DIGOXIN [Concomitant]
     Dosage: 125 MCG, FREQUENCY UNSPECIFIED
     Route: 048
     Dates: start: 20080509, end: 20080517
  4. ASPIRIN [Concomitant]
     Dosage: 100 MG, FREQUENCY UNSPECIFIED
     Route: 048
     Dates: start: 20080309, end: 20080517
  5. CARVEDILOL [Concomitant]
     Dosage: 6.25 MG, FREQUENCY UNSPECIFIED
     Route: 048
     Dates: start: 20080509, end: 20080517

REACTIONS (1)
  - PHLEBITIS [None]
